FAERS Safety Report 23157038 (Version 1)
Quarter: 2023Q4

REPORT INFORMATION
  Report Type: Spontaneous
  Country: US (occurrence: US)
  Receive Date: 20231108
  Receipt Date: 20231108
  Transmission Date: 20240110
  Serious: No
  Sender: FDA-Public Use
  Company Number: US-PADAGIS-2023PAD01571

PATIENT

DRUGS (6)
  1. MOMETASONE FUROATE [Suspect]
     Active Substance: MOMETASONE FUROATE
     Indication: Dermatitis atopic
     Dosage: UNK
     Route: 061
  2. MUPIROCIN [Suspect]
     Active Substance: MUPIROCIN
     Indication: Dermatitis atopic
     Dosage: UNK
     Route: 061
  3. TACROLIMUS [Suspect]
     Active Substance: TACROLIMUS
     Indication: Dermatitis atopic
     Dosage: UNK
     Route: 061
  4. PIMECROLIMUS [Suspect]
     Active Substance: PIMECROLIMUS
     Indication: Dermatitis atopic
     Dosage: UNK
     Route: 061
  5. FLUCONAZOLE [Concomitant]
     Active Substance: FLUCONAZOLE
     Indication: Candida infection
     Dosage: 100 MG, QD
     Route: 048
  6. FLUCONAZOLE [Concomitant]
     Active Substance: FLUCONAZOLE
     Indication: Systemic candida

REACTIONS (2)
  - Drug ineffective [Unknown]
  - Product use in unapproved indication [Unknown]
